FAERS Safety Report 8920445 (Version 1)
Quarter: 2012Q4

REPORT INFORMATION
  Report Type: 
  Country: US (occurrence: US)
  Receive Date: 20121122
  Receipt Date: 20121122
  Transmission Date: 20130627
  Serious: Yes (Other)
  Sender: FDA-Public Use
  Company Number: CHPA2012US023594

PATIENT
  Age: 64 Year
  Sex: Female

DRUGS (2)
  1. EXCEDRIN EXTRA STRENGTH [Suspect]
     Indication: HEADACHE
     Dosage: 2 pills, once a day
     Route: 048
  2. SUDAFED [Concomitant]

REACTIONS (4)
  - Heart valve incompetence [Unknown]
  - Dyspnoea [Unknown]
  - Therapeutic response unexpected [Unknown]
  - Incorrect drug administration duration [Unknown]
